FAERS Safety Report 4512445-X (Version None)
Quarter: 2004Q4

REPORT INFORMATION
  Report Type: 
  Country: None (occurrence: None)
  Receive Date: 20041008
  Receipt Date: 20040706
  Transmission Date: 20050328
  Serious: Yes (Other)
  Sender: FDA-Public Use
  Company Number: 370332

PATIENT
  Age: 33 Year
  Sex: Male
  Weight: 86.6 kg

DRUGS (1)
  1. FUZEON [Suspect]
     Dosage: 1 CC 2 PER DAY SUBCUTANEOUS
     Route: 058
     Dates: start: 20040525

REACTIONS (3)
  - INJECTION SITE NODULE [None]
  - INJECTION SITE PAIN [None]
  - INJECTION SITE REACTION [None]
